FAERS Safety Report 21459474 (Version 1)
Quarter: 2022Q4

REPORT INFORMATION
  Report Type: Spontaneous
  Country: US (occurrence: None)
  Receive Date: 20221014
  Receipt Date: 20221014
  Transmission Date: 20230112
  Serious: Yes (Other)
  Sender: FDA-Public Use
  Company Number: None

PATIENT
  Age: 33 Year
  Sex: Female
  Weight: 60.75 kg

DRUGS (9)
  1. MONTELUKAST SODIUM [Suspect]
     Active Substance: MONTELUKAST SODIUM
     Indication: Multiple allergies
     Dosage: OTHER QUANTITY : 1 TABLET(S)?FREQUENCY : AT BEDTIME?
     Route: 048
     Dates: end: 20221013
  2. XYWAV [Concomitant]
     Active Substance: CALCIUM OXYBATE\MAGNESIUM OXYBATE\POTASSIUM OXYBATE\SODIUM OXYBATE
  3. SERTRALINE [Concomitant]
     Active Substance: SERTRALINE HYDROCHLORIDE
  4. FOCALIN [Concomitant]
  5. MAGMIND [Concomitant]
  6. INOSITOL [Concomitant]
     Active Substance: INOSITOL
  7. MULTIVITAMIN [Concomitant]
  8. SPIRONOLACTONE [Concomitant]
     Active Substance: SPIRONOLACTONE
  9. BIOTIN [Concomitant]
     Active Substance: BIOTIN

REACTIONS (12)
  - Fatigue [None]
  - Irritability [None]
  - Anxiety [None]
  - Sleep disorder [None]
  - Aggression [None]
  - Muscle spasms [None]
  - Muscle twitching [None]
  - Depression [None]
  - Apathy [None]
  - Night sweats [None]
  - Oropharyngeal pain [None]
  - Body temperature increased [None]

NARRATIVE: CASE EVENT DATE: 20220817
